FAERS Safety Report 12628443 (Version 1)
Quarter: 2016Q3

REPORT INFORMATION
  Report Type: Spontaneous
  Country: US (occurrence: None)
  Receive Date: 20160805
  Receipt Date: 20160805
  Transmission Date: 20161109
  Serious: No
  Sender: FDA-Public Use
  Company Number: None

PATIENT
  Age: 70 Year
  Sex: Female
  Weight: 63.05 kg

DRUGS (21)
  1. CERTIRZINE [Concomitant]
  2. ADVAIR HFA [Concomitant]
     Active Substance: FLUTICASONE PROPIONATE\SALMETEROL XINAFOATE
  3. ATIVAN [Concomitant]
     Active Substance: LORAZEPAM
  4. MAGNESIUM [Concomitant]
     Active Substance: MAGNESIUM
  5. ATORVASTATIN 40 MG [Suspect]
     Active Substance: ATORVASTATIN
     Indication: BLOOD CHOLESTEROL
     Dosage: 1 PILL PO Q PM
     Route: 048
     Dates: start: 20160616, end: 20160713
  6. RESTASIS [Concomitant]
     Active Substance: CYCLOSPORINE
  7. FLEXRIL [Concomitant]
  8. CITRACAL [Concomitant]
     Active Substance: CALCIUM CITRATE
  9. NEBULIZER [Concomitant]
     Active Substance: DEVICE
  10. DEXILANT [Concomitant]
     Active Substance: DEXLANSOPRAZOLE
  11. SINGULAIR [Concomitant]
     Active Substance: MONTELUKAST SODIUM
  12. IPR/ALBUTEROL [Concomitant]
  13. NASONEX [Concomitant]
     Active Substance: MOMETASONE FUROATE
  14. STOOL SOFTNER [Concomitant]
     Active Substance: DOCUSATE SODIUM
  15. OXYGEN CONCENTRATOR [Concomitant]
  16. WARFARIN [Concomitant]
     Active Substance: WARFARIN
  17. TYLENOL X STRENGTH [Concomitant]
  18. ATORVASTATIN 40 MG [Suspect]
     Active Substance: ATORVASTATIN
     Indication: BLOOD TRIGLYCERIDES
     Dosage: 1 PILL PO Q PM
     Route: 048
     Dates: start: 20160616, end: 20160713
  19. COAGUCHECK XS SYSTEM [Concomitant]
  20. VERAPAMIL [Concomitant]
     Active Substance: VERAPAMIL HYDROCHLORIDE
  21. DUONEB [Concomitant]
     Active Substance: ALBUTEROL SULFATE\IPRATROPIUM BROMIDE

REACTIONS (7)
  - Bone pain [None]
  - Weight bearing difficulty [None]
  - Arthralgia [None]
  - Pain in extremity [None]
  - Muscle spasms [None]
  - Abasia [None]
  - Myalgia [None]

NARRATIVE: CASE EVENT DATE: 20160713
